FAERS Safety Report 7676537-9 (Version None)
Quarter: 2011Q3

REPORT INFORMATION
  Report Type: 
  Country: None (occurrence: None)
  Receive Date: 20110805
  Receipt Date: 20110722
  Transmission Date: 20111222
  Serious: Yes (Life-Threatening)
  Sender: FDA-Public Use
  Company Number: TCI2011A03534

PATIENT
  Age: 68 Year
  Sex: Female

DRUGS (11)
  1. WARFARIN(WARFARIN POTASSIUM) [Concomitant]
  2. UNIPHYL [Concomitant]
  3. BLOPRESS TABLETS 4(CANDESARTAN CILEXETIL) [Concomitant]
  4. ADOAIR(FLUTICASONE PROPIONATE, SALMETEROL XINAFOATE) [Concomitant]
  5. ALESION(EPINASTINE HYDROCHLORIDE) [Concomitant]
  6. ACTOS [Suspect]
     Indication: TYPE 2 DIABETES MELLITUS
     Dosage: 15 MG (15 MG,1 D) PER ORAL
     Route: 048
     Dates: start: 20090707, end: 20100608
  7. APRINDINE HYDROCHLORIDE [Concomitant]
  8. AMLODIPINE BESYLATE [Concomitant]
  9. OMEPRAZOLE [Concomitant]
  10. CRESTOR [Concomitant]
  11. MONTELUKAST SODIUM [Concomitant]

REACTIONS (1)
  - BLADDER CANCER [None]
